FAERS Safety Report 4707813-7 (Version None)
Quarter: 2005Q2

REPORT INFORMATION
  Report Type: 
  Country: None (occurrence: None)
  Receive Date: 20050629
  Receipt Date: 20050316
  Transmission Date: 20051028
  Serious: No
  Sender: FDA-Public Use
  Company Number: 05P-163-0294220-00

PATIENT
  Age: 74 Year
  Sex: Female
  Weight: 81.6475 kg

DRUGS (11)
  1. HUMIRA [Suspect]
     Indication: RHEUMATOID ARTHRITIS
     Dosage: 40 MG SUBCUTANEOUS
     Route: 058
     Dates: start: 20040301
  2. METHOTREXATE [Concomitant]
  3. THYROID TAB [Concomitant]
  4. FOLIC ACID [Concomitant]
  5. AMITRIPTYLINE HCL [Concomitant]
  6. FAMOTIDINE [Concomitant]
  7. VERAPAMIL [Concomitant]
  8. LEXAPRO [Concomitant]
  9. HYDROCODONE BITARTRATE [Concomitant]
  10. VITAMINS [Concomitant]
  11. POTASSIUM [Concomitant]

REACTIONS (2)
  - PRURITUS [None]
  - RASH [None]
